FAERS Safety Report 8298816-7 (Version None)
Quarter: 2012Q2

REPORT INFORMATION
  Report Type: 
  Country: None (occurrence: None)
  Receive Date: 20120416
  Receipt Date: 20120416
  Transmission Date: 20120825
  Serious: No
  Sender: FDA-Public Use
  Company Number: None

PATIENT
  Age: 59 Year
  Sex: Male

DRUGS (2)
  1. CASODEX [Suspect]
     Dates: start: 20100730, end: 20101128
  2. AVODART [Suspect]
     Dates: start: 20100730, end: 20101128

REACTIONS (1)
  - LIVER INJURY [None]
